FAERS Safety Report 22112752 (Version 1)
Quarter: 2023Q1

REPORT INFORMATION
  Report Type: Spontaneous
  Country: US (occurrence: None)
  Receive Date: 20230320
  Receipt Date: 20230320
  Transmission Date: 20230417
  Serious: No
  Sender: FDA-Public Use
  Company Number: 2023A047578

PATIENT
  Age: 824 Month
  Sex: Male
  Weight: 83.5 kg

DRUGS (3)
  1. BUDESONIDE\FORMOTEROL\GLYCOPYRRONIUM [Suspect]
     Active Substance: BUDESONIDE\FORMOTEROL\GLYCOPYRRONIUM
     Indication: Chronic obstructive pulmonary disease
     Dosage: 160MCG/9MCG/4.8MCG VIA INHALATION, 2 INHALATIONS TWICE DAILY
     Route: 055
     Dates: start: 2022
  2. SYMBICORT [Suspect]
     Active Substance: BUDESONIDE\FORMOTEROL FUMARATE DIHYDRATE
     Indication: Chronic obstructive pulmonary disease
     Dosage: 160MCG/4.5MCG VIA INHALATION, 2 INHALATIONS TWICE DAILY
     Route: 055
     Dates: start: 2013
  3. TEZSPIRE [Suspect]
     Active Substance: TEZEPELUMAB-EKKO
     Indication: Asthma
     Dosage: 210 MG TOTAL110MG/ML EVERY FOUR WEEKS
     Route: 058
     Dates: start: 2022

REACTIONS (6)
  - Nervousness [Unknown]
  - Dyspnoea [Unknown]
  - Incorrect dose administered by device [Unknown]
  - Device malfunction [Unknown]
  - Device use issue [Unknown]
  - Wrong technique in device usage process [Unknown]

NARRATIVE: CASE EVENT DATE: 20220101
